FAERS Safety Report 15402571 (Version 1)
Quarter: 2018Q3

REPORT INFORMATION
  Report Type: Spontaneous
  Country: US (occurrence: US)
  Receive Date: 20180917
  Receipt Date: 20180917
  Transmission Date: 20181010
  Serious: Yes (Life-Threatening, Hospitalization, Disabling)
  Sender: FDA-Public Use
  Company Number: None

PATIENT
  Age: 39 Year
  Sex: Female
  Weight: 126 kg

DRUGS (8)
  1. FOLIC ACID. [Concomitant]
     Active Substance: FOLIC ACID
  2. DROSPIRENONE AND ETHINYL ESTRADIOL [Suspect]
     Active Substance: DROSPIRENONE\ETHINYL ESTRADIOL
     Indication: DYSMENORRHOEA
     Dosage: ?          QUANTITY:1 TABLET(S);?
     Route: 048
  3. QUINACRINE [Concomitant]
     Active Substance: QUINACRINE
  4. IVIG INFUSION [Concomitant]
     Active Substance: HUMAN IMMUNOGLOBULIN G
  5. CELEBS [Concomitant]
  6. ACIPHEX [Concomitant]
     Active Substance: RABEPRAZOLE SODIUM
  7. METHOTREXATE. [Concomitant]
     Active Substance: METHOTREXATE
  8. PLAQUENIL [Concomitant]
     Active Substance: HYDROXYCHLOROQUINE SULFATE

REACTIONS (5)
  - Cerebral venous thrombosis [None]
  - Seizure [None]
  - Amnesia [None]
  - Blindness [None]
  - Intracranial pressure increased [None]

NARRATIVE: CASE EVENT DATE: 20180118
